FAERS Safety Report 24064989 (Version 1)
Quarter: 2024Q3

REPORT INFORMATION
  Report Type: Spontaneous
  Country: US (occurrence: US)
  Receive Date: 20240709
  Receipt Date: 20240709
  Transmission Date: 20241017
  Serious: Yes (Other)
  Sender: BRISTOL MYERS SQUIBB
  Company Number: US-BRISTOL-MYERS SQUIBB COMPANY-2024-108110

PATIENT
  Age: 82 Year
  Sex: Male
  Weight: 51.71 kg

DRUGS (5)
  1. POMALYST [Suspect]
     Active Substance: POMALIDOMIDE
     Indication: Plasma cell myeloma
     Route: 048
     Dates: start: 20240301
  2. XARELTO [Concomitant]
     Active Substance: RIVAROXABAN
     Dosage: FREQUENCY: 1 PO DAILY
     Route: 048
  3. FLOMAX [Concomitant]
     Active Substance: TAMSULOSIN HYDROCHLORIDE
     Dosage: FREQUENCY: TAKE 2 PO DAILY
     Route: 048
  4. AMIODARONE [Concomitant]
     Active Substance: AMIODARONE
     Dosage: FREQUENCY: 1 PO DAILY
     Route: 048
  5. LEXAPRO [Concomitant]
     Active Substance: ESCITALOPRAM OXALATE
     Dosage: FREQUENCY: 1 PO DAILY
     Route: 048

REACTIONS (1)
  - Neutropenia [Recovering/Resolving]

NARRATIVE: CASE EVENT DATE: 20240626
